FAERS Safety Report 10245319 (Version 1)
Quarter: 2014Q2

REPORT INFORMATION
  Report Type: Report from Study
  Country: US (occurrence: US)
  Receive Date: 20140618
  Receipt Date: 20140618
  Transmission Date: 20141212
  Serious: Yes (Death)
  Sender: FDA-Public Use
  Company Number: US-BAXTER-2014BAX031663

PATIENT
  Sex: 0

DRUGS (1)
  1. CEFEPIME INJECTION [Suspect]
     Indication: INFECTION PROPHYLAXIS
     Route: 065

REACTIONS (2)
  - Respiratory failure [Fatal]
  - Pulmonary haemorrhage [Fatal]
